FAERS Safety Report 23884107 (Version 1)
Quarter: 2024Q2

REPORT INFORMATION
  Report Type: Spontaneous
  Country: DE (occurrence: DE)
  Receive Date: 20240522
  Receipt Date: 20240522
  Transmission Date: 20240715
  Serious: Yes (Other)
  Sender: FDA-Public Use
  Company Number: DE-TEVA-VS-3194482

PATIENT
  Age: 79 Year
  Sex: Male

DRUGS (1)
  1. ROSUVASTATIN [Suspect]
     Active Substance: ROSUVASTATIN
     Indication: Product used for unknown indication
     Dosage: 15 MILLIGRAM, ONCE A DAY (RATIOPHARM (TEVA), TAKING FOR OVER 2 YEARS)
     Route: 048

REACTIONS (1)
  - Deafness [Unknown]
